FAERS Safety Report 6304231-5 (Version None)
Quarter: 2009Q3

REPORT INFORMATION
  Report Type: 
  Country: None (occurrence: None)
  Receive Date: 20090811
  Receipt Date: 20090730
  Transmission Date: 20100115
  Serious: Yes (Other)
  Sender: FDA-Public Use
  Company Number: US-JNJFOC-20090710008

PATIENT
  Sex: Female
  Weight: 73.48 kg

DRUGS (13)
  1. REMICADE [Suspect]
     Indication: RHEUMATOID ARTHRITIS
     Dosage: 18 DOSES RECEIVED; 100 MG INFUSED 10 MG/KG IN 250 ML NS OVER TWO HOURS Q 4 WEEKS.
     Route: 042
  2. CYMBALTA [Concomitant]
  3. VYTORIN [Concomitant]
     Dosage: 10-10 MG (ALSO REPORTED AS 10-20 MG)
     Route: 048
  4. FISH OIL [Concomitant]
     Route: 048
  5. LORATADINE [Concomitant]
     Dosage: GIVEN PRIOR TO REMICADE
     Route: 048
  6. FOLIC ACID [Concomitant]
     Dosage: EXCEPT METHOTREXATE DAY
     Route: 048
  7. VITAMIN D [Concomitant]
     Route: 048
  8. MELOXICAM [Concomitant]
     Route: 048
  9. SOLU-CORTEF [Concomitant]
     Dosage: ADMINISTERED SIVP PRIOR TO REMICADE
     Route: 050
  10. METHOTREXATE [Concomitant]
     Route: 048
  11. ARTHROTEC [Concomitant]
     Dosage: 75 75-200 MG-MCG
     Route: 048
  12. CYCLOBENZAPRINE HCL [Concomitant]
     Indication: MYALGIA
     Dosage: 1 TABLET QHS AND PRN DURING THE DAY
     Route: 048
  13. PREDNISONE [Concomitant]
     Dosage: 1 TO 6 TABLETS EVERYDAY AS NEEDED; TAKE 3 BY MOUTH EVERYDAY FOR 1 WEEK THAN 2 BY MOUTH EVERYDAY.
     Route: 048

REACTIONS (4)
  - APPETITE DISORDER [None]
  - BLOOD PRESSURE INCREASED [None]
  - DIARRHOEA [None]
  - HISTOPLASMOSIS [None]
